FAERS Safety Report 6814518-5 (Version None)
Quarter: 2010Q3

REPORT INFORMATION
  Report Type: 
  Country: None (occurrence: None)
  Receive Date: 20100702
  Receipt Date: 20100621
  Transmission Date: 20110219
  Serious: Yes (Hospitalization)
  Sender: FDA-Public Use
  Company Number: FR-JNJFOC-20040305531

PATIENT

DRUGS (1)
  1. VERMOX [Suspect]
     Indication: ECHINOCOCCIASIS
     Route: 048

REACTIONS (2)
  - APLASIA [None]
  - THROMBOCYTOPENIA [None]
